FAERS Safety Report 24877524 (Version 1)
Quarter: 2025Q1

REPORT INFORMATION
  Report Type: Spontaneous
  Country: US (occurrence: US)
  Receive Date: 20250123
  Receipt Date: 20250123
  Transmission Date: 20250408
  Serious: No
  Sender: GLAXOSMITHKLINE
  Company Number: US-GSKCCFUS-Case-02193384_AE-120580

PATIENT
  Sex: Female

DRUGS (1)
  1. TRELEGY ELLIPTA [Suspect]
     Active Substance: FLUTICASONE FUROATE\UMECLIDINIUM BROMIDE\VILANTEROL TRIFENATATE
     Indication: Product used for unknown indication
     Dosage: 1 PUFF(S), QD; 200/62.5/25MCG
     Dates: start: 2024

REACTIONS (4)
  - Constipation [Not Recovered/Not Resolved]
  - Faeces hard [Unknown]
  - Decreased appetite [Unknown]
  - Incorrect dose administered [Unknown]
